FAERS Safety Report 18751737 (Version 2)
Quarter: 2021Q1

REPORT INFORMATION
  Report Type: Report from Study
  Country: None (occurrence: CO)
  Receive Date: 20210118
  Receipt Date: 20210224
  Transmission Date: 20210419
  Serious: Yes (Other)
  Sender: FDA-Public Use
  Company Number: CO-ABBVIE-20K-036-3611575-00

PATIENT
  Age: 49 Year
  Sex: Female

DRUGS (2)
  1. HUMIRA [Suspect]
     Active Substance: ADALIMUMAB
     Indication: CROHN^S DISEASE
     Route: 058
  2. HUMIRA [Suspect]
     Active Substance: ADALIMUMAB
     Indication: PRODUCT USED FOR UNKNOWN INDICATION
     Route: 058
     Dates: start: 20150416

REACTIONS (10)
  - Peripheral embolism [Recovering/Resolving]
  - Oropharyngeal discomfort [Recovering/Resolving]
  - Pain in extremity [Recovering/Resolving]
  - Influenza [Recovered/Resolved]
  - Venous thrombosis limb [Not Recovered/Not Resolved]
  - Dry throat [Recovering/Resolving]
  - Gingival bleeding [Recovered/Resolved]
  - Nasal discomfort [Recovering/Resolving]
  - Crohn^s disease [Not Recovered/Not Resolved]
  - Contusion [Recovering/Resolving]

NARRATIVE: CASE EVENT DATE: 2020
